FAERS Safety Report 17900339 (Version 1)
Quarter: 2020Q2

REPORT INFORMATION
  Report Type: Spontaneous
  Country: US (occurrence: US)
  Receive Date: 20200616
  Receipt Date: 20200616
  Transmission Date: 20200714
  Serious: Yes (Disabling)
  Sender: FDA-Public Use
  Company Number: None

PATIENT
  Age: 39 Year
  Sex: Female
  Weight: 83.7 kg

DRUGS (9)
  1. ARMOUR THYROID [Concomitant]
     Active Substance: THYROID, PORCINE
  2. NP THYROID [Suspect]
     Active Substance: LEVOTHYROXINE\LIOTHYRONINE
     Indication: HYPOTHYROIDISM
     Dosage: ?          QUANTITY:90 TABLET(S);?
     Route: 048
     Dates: start: 20190610, end: 20190806
  3. METOPROLOL. [Concomitant]
     Active Substance: METOPROLOL
  4. ZINC. [Concomitant]
     Active Substance: ZINC
  5. PANTOPRAZOLE [Concomitant]
     Active Substance: PANTOPRAZOLE
  6. VITAMIN D [Concomitant]
     Active Substance: VITAMIN D NOS
  7. VITAMIN C [Concomitant]
     Active Substance: ASCORBIC ACID
  8. BIRTH CONTROL PILLS [Concomitant]
     Active Substance: UNSPECIFIED INGREDIENT
  9. SELENIUM [Concomitant]
     Active Substance: SELENIUM

REACTIONS (7)
  - Chest pain [None]
  - Tremor [None]
  - Hot flush [None]
  - Tachycardia [None]
  - Anxiety [None]
  - Recalled product administered [None]
  - Arthralgia [None]

NARRATIVE: CASE EVENT DATE: 20190610
